FAERS Safety Report 6712000-7 (Version None)
Quarter: 2010Q2

REPORT INFORMATION
  Report Type: 
  Country: None (occurrence: None)
  Receive Date: 20100505
  Receipt Date: 20100427
  Transmission Date: 20101027
  Serious: Yes (Hospitalization)
  Sender: FDA-Public Use
  Company Number: US-PFIZER INC-2010053241

PATIENT
  Sex: Female

DRUGS (3)
  1. SUTENT [Suspect]
     Indication: MENINGIOMA
     Dosage: UNK
     Dates: start: 20091124, end: 20091221
  2. NORVASC [Concomitant]
     Dosage: UNK
     Dates: start: 20091209
  3. PREDNISONE [Concomitant]
     Dosage: UNK
     Dates: start: 20091204

REACTIONS (3)
  - ASPARTATE AMINOTRANSFERASE ABNORMAL [None]
  - DEHYDRATION [None]
  - MUSCULAR WEAKNESS [None]
